FAERS Safety Report 8548556-1 (Version None)
Quarter: 2012Q3

REPORT INFORMATION
  Report Type: 
  Country: None (occurrence: None)
  Receive Date: 20120730
  Receipt Date: 20120718
  Transmission Date: 20120928
  Serious: Yes (Other)
  Sender: FDA-Public Use
  Company Number: BR-NOVOPROD-356344

PATIENT
  Sex: Male

DRUGS (4)
  1. VICTOZA [Suspect]
     Indication: PRODUCT USED FOR UNKNOWN INDICATION
     Dosage: 1.2 MG
  2. SINVASCOR [Concomitant]
  3. METFORMIN HYDROCHLORIDE [Concomitant]
  4. LOSARTAN POTASSIUM [Concomitant]
     Dosage: UNK UNK, QD

REACTIONS (1)
  - HAEMATOCHEZIA [None]
